FAERS Safety Report 4350020-0 (Version None)
Quarter: 2004Q2

REPORT INFORMATION
  Report Type: 
  Country: None (occurrence: None)
  Receive Date: 20040428
  Receipt Date: 20040428
  Transmission Date: 20050107
  Serious: No
  Sender: FDA-Public Use
  Company Number: None

PATIENT
  Age: 45 Year
  Sex: Male
  Weight: 34.4734 kg

DRUGS (1)
  1. ZOLOFT [Suspect]
     Indication: OBSESSIVE-COMPULSIVE DISORDER
     Dosage: Q HS

REACTIONS (2)
  - DISCOMFORT [None]
  - FEELING ABNORMAL [None]
